FAERS Safety Report 6838871-1 (Version None)
Quarter: 2010Q3

REPORT INFORMATION
  Report Type: 
  Country: None (occurrence: None)
  Receive Date: 20100713
  Receipt Date: 20070710
  Transmission Date: 20110219
  Serious: No
  Sender: FDA-Public Use
  Company Number: US-PFIZER INC-2007037231

PATIENT
  Sex: Female
  Weight: 127 kg

DRUGS (3)
  1. CHANTIX [Suspect]
     Indication: SMOKING CESSATION THERAPY
     Route: 048
     Dates: start: 20070417
  2. XANAX [Concomitant]
  3. AMBIEN [Concomitant]

REACTIONS (5)
  - COUGH [None]
  - LUNG DISORDER [None]
  - RESPIRATORY TRACT CONGESTION [None]
  - SALIVA ALTERED [None]
  - SPUTUM DISCOLOURED [None]
